FAERS Safety Report 13434901 (Version 1)
Quarter: 2017Q2

REPORT INFORMATION
  Report Type: Report from Study
  Country: BR (occurrence: BR)
  Receive Date: 20170413
  Receipt Date: 20170413
  Transmission Date: 20170830
  Serious: Yes (Other)
  Sender: FDA-Public Use
  Company Number: PHHY2017BR055096

PATIENT
  Sex: Female
  Weight: 84 kg

DRUGS (1)
  1. DIOVAN [Suspect]
     Active Substance: VALSARTAN
     Indication: HYPERTENSION
     Route: 065

REACTIONS (8)
  - Asthmatic crisis [Recovering/Resolving]
  - Agitation [Unknown]
  - Cough [Recovering/Resolving]
  - Body height decreased [Unknown]
  - Osteoarthritis [Unknown]
  - Diaphragmatic paralysis [Unknown]
  - Dyspnoea [Unknown]
  - Bronchitis [Unknown]
